FAERS Safety Report 9814605 (Version 1)
Quarter: 2014Q1

REPORT INFORMATION
  Report Type: Spontaneous
  Country: BR (occurrence: BR)
  Receive Date: 20140113
  Receipt Date: 20140113
  Transmission Date: 20141002
  Serious: Yes (Hospitalization, Other)
  Sender: FDA-Public Use
  Company Number: PHHY2014BR002993

PATIENT
  Age: 89 Year
  Sex: Female

DRUGS (1)
  1. DIOVAN AMLO FIX [Suspect]
     Indication: HYPERTENSION
     Dosage: 1 DF (VALS 320MG, AMLO 10MG) DAILY
     Route: 048
     Dates: start: 201312

REACTIONS (2)
  - Cerebrovascular accident [Recovering/Resolving]
  - Local swelling [Recovered/Resolved]
